FAERS Safety Report 6396186-2 (Version None)
Quarter: 2009Q4

REPORT INFORMATION
  Report Type: 
  Country: None (occurrence: None)
  Receive Date: 20091011
  Receipt Date: 20090929
  Transmission Date: 20100525
  Serious: Yes (Hospitalization, Other)
  Sender: FDA-Public Use
  Company Number: PHHY2009BR27152

PATIENT
  Sex: Female
  Weight: 56.5 kg

DRUGS (4)
  1. FORASEQ [Suspect]
     Indication: ASTHMA
     Dosage: 12/400 UG, TID
     Dates: start: 20080601
  2. FORASEQ [Suspect]
     Dosage: 12/400 MCG, TID
  3. DECADRON [Concomitant]
  4. AMINOPHYLLINE [Concomitant]
     Indication: ASTHMA
     Dosage: UNK
     Route: 048
     Dates: start: 20050101

REACTIONS (6)
  - ASTHMA [None]
  - FLUID RETENTION [None]
  - MICTURITION FREQUENCY DECREASED [None]
  - SWELLING [None]
  - URINE OUTPUT DECREASED [None]
  - WEIGHT INCREASED [None]
